FAERS Safety Report 8474522 (Version 3)
Quarter: 2013Q1

REPORT INFORMATION
  Report Type: Report from Study
  Country: JP (occurrence: JP)
  Receive Date: 20120323
  Receipt Date: 20130101
  Transmission Date: 20140127
  Serious: Yes (Hospitalization, Other)
  Sender: FDA-Public Use
  Company Number: JP-ROCHE-1049149

PATIENT
  Age: 56 Year
  Sex: Female

DRUGS (3)
  1. PEG-INTERFERON ALFA 2A [Suspect]
     Indication: CHRONIC HEPATITIS C
     Route: 058
     Dates: start: 20100909, end: 20120203
  2. RIBAVIRIN [Suspect]
     Indication: CHRONIC HEPATITIS C
     Route: 048
     Dates: start: 20100909, end: 20110110
  3. RIBAVIRIN [Suspect]
     Indication: CHRONIC HEPATITIS C
     Route: 048
     Dates: start: 20110114, end: 20120210

REACTIONS (8)
  - Anaemia [Recovered/Resolved]
  - Pruritus [Recovering/Resolving]
  - Rash [Recovered/Resolved]
  - Pyrexia [Recovering/Resolving]
  - Melaena [Recovering/Resolving]
  - Stomatitis [Recovering/Resolving]
  - Shock [Recovered/Resolved]
  - Large intestinal haemorrhage [Unknown]
